FAERS Safety Report 8862010 (Version 1)
Quarter: 2012Q4

REPORT INFORMATION
  Report Type: 
  Country: US (occurrence: US)
  Receive Date: 20121025
  Receipt Date: 20121025
  Transmission Date: 20130627
  Serious: Yes (Other)
  Sender: FDA-Public Use
  Company Number: US-SANOFI-AVENTIS-2012SA076622

PATIENT
  Age: 61 Year
  Sex: Female

DRUGS (5)
  1. LANTUS [Suspect]
     Dosage: Dose:60 unit(s)
     Route: 058
     Dates: start: 2010
  2. LANTUS [Suspect]
     Dosage: Dose:60 unit(s)
     Route: 058
     Dates: start: 2010
  3. LANTUS [Suspect]
     Dosage: Dose:60 unit(s)
     Route: 058
     Dates: start: 2010
  4. ACTOS /USA/ [Concomitant]
  5. METFORMIN [Concomitant]

REACTIONS (4)
  - Thyroid cancer [Not Recovered/Not Resolved]
  - Glycosylated haemoglobin increased [Not Recovered/Not Resolved]
  - Diabetes mellitus inadequate control [Not Recovered/Not Resolved]
  - Incorrect storage of drug [Unknown]
